FAERS Safety Report 5579313-6 (Version None)
Quarter: 2007Q4

REPORT INFORMATION
  Report Type: 
  Country: None (occurrence: None)
  Receive Date: 20071228
  Receipt Date: 20071213
  Transmission Date: 20080405
  Serious: Yes (Death, Life-Threatening, Hospitalization)
  Sender: FDA-Public Use
  Company Number: E3810-01433-SOL-US

PATIENT
  Age: 76 Year
  Sex: Female
  Weight: 83 kg

DRUGS (22)
  1. ACIPHEX [Suspect]
     Indication: GASTROOESOPHAGEAL REFLUX DISEASE
     Dosage: 20 MG, ORAL
     Route: 048
     Dates: start: 20070314
  2. LIDOCAINE VISCOUS [Suspect]
     Dosage: ORAL
     Route: 048
     Dates: start: 20071113
  3. SERTRALINE [Concomitant]
  4. ASPIRIN [Concomitant]
  5. PLAXIC (PLAX) [Concomitant]
  6. FLAGIL (METRONIDAZOLE) [Concomitant]
  7. CIPRO [Concomitant]
  8. ACETAMINOPHEN [Concomitant]
  9. DARVOCIT (PROPACET) [Concomitant]
  10. LANTUS [Concomitant]
  11. PREDNESEIONE (PREDNISOLONE SODIUM PHOSPHATE) [Concomitant]
  12. NORVASC [Concomitant]
  13. DULEALAX (DUAL-LAX) [Concomitant]
  14. ARANESP [Concomitant]
  15. ATIVAN [Concomitant]
  16. SODIUM CHLORIDE [Concomitant]
  17. PROTONIX [Concomitant]
  18. VERAPARIL (VERAPAMIL) [Concomitant]
  19. ASPART [Concomitant]
  20. ALLAPURERIAL [Concomitant]
  21. ZEMPLAR [Concomitant]
  22. SENOKOT [Concomitant]

REACTIONS (4)
  - CENTRAL LINE INFECTION [None]
  - COLITIS ISCHAEMIC [None]
  - RENAL FAILURE CHRONIC [None]
  - SEPSIS [None]
